FAERS Safety Report 6273520-5 (Version None)
Quarter: 2009Q3

REPORT INFORMATION
  Report Type: 
  Country: None (occurrence: None)
  Receive Date: 20090716
  Receipt Date: 20090709
  Transmission Date: 20100115
  Serious: Yes (Other)
  Sender: FDA-Public Use
  Company Number: ADR6522009 (ARROW LOG NO: 2007AG1152)

PATIENT
  Age: 81 Year
  Sex: Female

DRUGS (4)
  1. GLIMEPIRIDE [Suspect]
     Indication: DIABETES MELLITUS
     Dosage: GLIMEPIRIDE (4MG/DAY)
  2. METFORMIN HCL [Suspect]
     Indication: TYPE 2 DIABETES MELLITUS
     Dosage: METFORMIN (3 G/DAY)
     Route: 048
  3. CALCIUM CHANNEL BLOCKERS [Concomitant]
  4. HYDROCHLOROTHIAZIDE [Concomitant]

REACTIONS (2)
  - LACTIC ACIDOSIS [None]
  - RENAL FAILURE ACUTE [None]
